FAERS Safety Report 5796743-8 (Version None)
Quarter: 2008Q2

REPORT INFORMATION
  Report Type: 
  Country: None (occurrence: None)
  Receive Date: 20080630
  Receipt Date: 20080630
  Transmission Date: 20081010
  Serious: No
  Sender: FDA-Public Use
  Company Number: None

PATIENT
  Age: 48 Year
  Sex: Female
  Weight: 87.0906 kg

DRUGS (1)
  1. TERBENAFINE -TERBINAFINE- 250 NOT KNOWN, WALMART [Suspect]
     Indication: ONYCHOMYCOSIS
     Dosage: 1 TABLET DAILY PO
     Route: 048
     Dates: start: 20080512, end: 20080626

REACTIONS (2)
  - DYSGEUSIA [None]
  - MALAISE [None]
